FAERS Safety Report 9251166 (Version 1)
Quarter: 2013Q1

REPORT INFORMATION
  Report Type: Spontaneous
  Country: US (occurrence: None)
  Receive Date: 20130305
  Receipt Date: 20130305
  Transmission Date: 20140127
  Serious: Yes (Other)
  Sender: FDA-Public Use
  Company Number: 163-21880-12071815

PATIENT
  Age: 61 Year
  Sex: Female
  Weight: 61.2 kg

DRUGS (35)
  1. REVLIMID [Suspect]
     Indication: PLASMA CELL MYELOMA
     Dosage: 28 IN 28 D
     Route: 048
     Dates: start: 20120622
  2. PREDNISONE (PREDNISONE) [Concomitant]
  3. DEXAMETHASONE (DEXAMETHASONE) [Concomitant]
  4. METHADONE (METHADONE) [Concomitant]
  5. ERYTHROMYCIN (ERYTHROMYCIN) [Concomitant]
  6. POTASSIUM CHLORIDE (POTASSIUM CHLORIDE) [Concomitant]
  7. CARVEDILOL (CARVEDILOL) [Concomitant]
  8. GABAPENTIN (GABAPENTIN) [Concomitant]
  9. METOCLOPRAMIDE (METOCLOPRAMIDE) [Concomitant]
  10. AUGMENTIN (CLAVULIN) [Concomitant]
  11. LORAZEPAM (LORAZEPAM) [Concomitant]
  12. ONDANSETRON (ONDANSETRON) [Concomitant]
  13. LANSOPRAZOLE (LANSOPRAZOLE) [Concomitant]
  14. ACYCLOVIR (ACICLOVIR) (ACICLOVIR) [Concomitant]
  15. PROCHLORPERAZINE (PROCHLORPERAZINE) [Concomitant]
  16. FLUDROCORTISONE (FLUDROCORTISONE) [Concomitant]
  17. LISINOPRIL (LISINOPRIL) [Concomitant]
  18. CIPROFLOXACIN (CIPROFLOXACIN) [Concomitant]
  19. FLUCONAZOLE (FLUCONAZOLE) [Concomitant]
  20. BACTRIM DS (BACTRIM) [Concomitant]
  21. HALOPERIDOL (HALOPERIDOL) (HALOPERIDOL) [Concomitant]
  22. AMITRIPTYLINE (AMITRIPTYLINE) [Concomitant]
  23. HYDROCODONE/ACETAMINOPHEN (REMEDEINE) [Concomitant]
  24. DRONABINOL [Concomitant]
  25. LOPERAMIDE (LOPERAMIDE) [Concomitant]
  26. MAGNESIUM (MAGNESIUM) [Concomitant]
  27. OXYCODONE (OXYCODONE) [Concomitant]
  28. NEUPOGEN (FILGRASTIM) [Concomitant]
  29. CLARITIN (LORATADINE) [Concomitant]
  30. DAPSONE (DAPSONE) [Concomitant]
  31. FLORINEF (FLUDROCORTISONE ACETATE) [Concomitant]
  32. PREVACID (LANSOPRAZOLE) [Concomitant]
  33. ZOFRAN (ONDANSETRON HYDROCHLORIDE) [Concomitant]
  34. ASPIRIN (ACETYLSALICYLIC ACID) [Concomitant]
  35. ZOMETA (ZOLEDRONIC ACID) (INJECTION FOR INFUSION) [Concomitant]

REACTIONS (6)
  - Contusion [None]
  - Urticaria [None]
  - White blood cell count decreased [None]
  - Arthralgia [None]
  - Diarrhoea [None]
  - Nasopharyngitis [None]
